FAERS Safety Report 8885603 (Version 2)
Quarter: 2012Q4

REPORT INFORMATION
  Report Type: 
  Country: FR (occurrence: FR)
  Receive Date: 20121105
  Receipt Date: 20121128
  Transmission Date: 20130627
  Serious: No
  Sender: FDA-Public Use
  Company Number: FR-JNJFOC-20121100687

PATIENT
  Sex: Female

DRUGS (2)
  1. XARELTO [Suspect]
     Indication: BRONCHITIS
     Route: 048
  2. XARELTO [Suspect]
     Indication: EMBOLISM
     Route: 048

REACTIONS (1)
  - Nausea [Unknown]
